FAERS Safety Report 4798841-4 (Version None)
Quarter: 2005Q4

REPORT INFORMATION
  Report Type: 
  Country: None (occurrence: None)
  Receive Date: 20051014
  Receipt Date: 20050520
  Transmission Date: 20060501
  Serious: Yes (Other)
  Sender: FDA-Public Use
  Company Number: 405733

PATIENT
  Age: 75 Year
  Sex: Female
  Weight: 83.6 kg

DRUGS (1)
  1. COREG [Suspect]
     Indication: DRUG USE FOR UNKNOWN INDICATION
     Dosage: 6.25MG UNKNOWN
     Route: 048
     Dates: start: 20050501, end: 20050601

REACTIONS (5)
  - CHILLS [None]
  - FEELING COLD [None]
  - NAUSEA [None]
  - VOMITING [None]
  - WEIGHT DECREASED [None]
